FAERS Safety Report 9304942 (Version 4)
Quarter: 2019Q4

REPORT INFORMATION
  Report Type: Spontaneous
  Country: US (occurrence: US)
  Receive Date: 20130523
  Receipt Date: 20191219
  Transmission Date: 20200122
  Serious: Yes (Other)
  Sender: FDA-Public Use
  Company Number: US-UCBSA-085721

PATIENT
  Age: 30 Year
  Sex: Female

DRUGS (2)
  1. CIMZIA [Suspect]
     Active Substance: CERTOLIZUMAB PEGOL
     Indication: CROHN^S DISEASE
     Dosage: MONTHLY
     Dates: start: 20130422, end: 2013
  2. IMURAN [Concomitant]
     Active Substance: AZATHIOPRINE

REACTIONS (9)
  - Arthralgia [Not Recovered/Not Resolved]
  - Urinary tract infection [Not Recovered/Not Resolved]
  - Vomiting projectile [Unknown]
  - Contusion [Unknown]
  - Rash [Not Recovered/Not Resolved]
  - Diarrhoea [Unknown]
  - Myalgia [Unknown]
  - Urticaria [Unknown]
  - Product quality issue [Unknown]

NARRATIVE: CASE EVENT DATE: 2013
